FAERS Safety Report 13830013 (Version 2)
Quarter: 2017Q3

REPORT INFORMATION
  Report Type: Spontaneous
  Country: US (occurrence: US)
  Receive Date: 20170803
  Receipt Date: 20170824
  Transmission Date: 20171127
  Serious: Yes (Other)
  Sender: FDA-Public Use
  Company Number: US-BRISTOL-MYERS SQUIBB COMPANY-BMS-2017-068564

PATIENT
  Sex: Male

DRUGS (2)
  1. PROTONIX                           /00661201/ [Concomitant]
     Active Substance: OMEPRAZOLE
     Indication: GASTROOESOPHAGEAL REFLUX DISEASE
     Route: 065
  2. ABILIFY [Suspect]
     Active Substance: ARIPIPRAZOLE
     Indication: BIPOLAR II DISORDER
     Dosage: 5 MG, QHS
     Route: 048
     Dates: start: 201003, end: 201705

REACTIONS (6)
  - Diabetes mellitus [Unknown]
  - Weight increased [Unknown]
  - Gambling [Unknown]
  - Product use in unapproved indication [Unknown]
  - Withdrawal syndrome [Not Recovered/Not Resolved]
  - Treatment noncompliance [Unknown]
